FAERS Safety Report 24681821 (Version 13)
Quarter: 2025Q2

REPORT INFORMATION
  Report Type: Spontaneous
  Country: CA (occurrence: CA)
  Receive Date: 20241130
  Receipt Date: 20250530
  Transmission Date: 20250717
  Serious: Yes (Hospitalization, Other)
  Sender: CELLTRION
  Company Number: CA-PFIZER INC-202400268848

PATIENT

DRUGS (14)
  1. INFLECTRA [Suspect]
     Active Substance: INFLIXIMAB-DYYB
     Indication: Crohn^s disease
     Route: 042
     Dates: start: 20240917
  2. INFLECTRA [Suspect]
     Active Substance: INFLIXIMAB-DYYB
     Route: 042
     Dates: start: 20241001
  3. INFLECTRA [Suspect]
     Active Substance: INFLIXIMAB-DYYB
     Route: 042
     Dates: start: 20241025
  4. INFLECTRA [Suspect]
     Active Substance: INFLIXIMAB-DYYB
     Route: 042
     Dates: start: 20241203, end: 20241203
  5. INFLECTRA [Suspect]
     Active Substance: INFLIXIMAB-DYYB
     Route: 042
     Dates: start: 20250115
  6. INFLECTRA [Suspect]
     Active Substance: INFLIXIMAB-DYYB
     Route: 042
     Dates: start: 20250207
  7. INFLECTRA [Suspect]
     Active Substance: INFLIXIMAB-DYYB
     Route: 042
     Dates: start: 20250326
  8. INFLECTRA [Suspect]
     Active Substance: INFLIXIMAB-DYYB
     Route: 042
     Dates: start: 20250423
  9. INFLECTRA [Suspect]
     Active Substance: INFLIXIMAB-DYYB
     Route: 042
     Dates: start: 20250521
  10. BACLOFEN [Concomitant]
     Active Substance: BACLOFEN
     Route: 048
  11. IBUPROFEN [Concomitant]
     Active Substance: IBUPROFEN
  12. IBUPROFEN [Concomitant]
     Active Substance: IBUPROFEN
  13. PREDNISONE [Concomitant]
     Active Substance: PREDNISONE
  14. TRAMADOL [Concomitant]
     Active Substance: TRAMADOL
     Route: 048

REACTIONS (6)
  - Condition aggravated [Recovering/Resolving]
  - Fistula [Not Recovered/Not Resolved]
  - Hysterectomy [Unknown]
  - Colectomy [Unknown]
  - Drug ineffective [Unknown]
  - Off label use [Unknown]

NARRATIVE: CASE EVENT DATE: 20240917
